FAERS Safety Report 6696214-0 (Version None)
Quarter: 2010Q2

REPORT INFORMATION
  Report Type: 
  Country: None (occurrence: None)
  Receive Date: 20100426
  Receipt Date: 20100415
  Transmission Date: 20101027
  Serious: Yes (Hospitalization)
  Sender: FDA-Public Use
  Company Number: US-AMGEN-QUU406667

PATIENT
  Sex: Female

DRUGS (3)
  1. ENBREL [Suspect]
     Indication: PSORIASIS
     Route: 058
     Dates: start: 20050501
  2. METHOTREXATE [Concomitant]
     Route: 058
  3. HUMIRA [Concomitant]

REACTIONS (5)
  - HEADACHE [None]
  - INJECTION SITE ERYTHEMA [None]
  - NAUSEA [None]
  - OEDEMA PERIPHERAL [None]
  - PSORIATIC ARTHROPATHY [None]
